FAERS Safety Report 14300522 (Version 34)
Quarter: 2019Q1

REPORT INFORMATION
  Report Type: Report from Study
  Country: LV (occurrence: LV)
  Receive Date: 20171219
  Receipt Date: 20190314
  Transmission Date: 20190417
  Serious: Yes (Death, Hospitalization)
  Sender: FDA-Public Use
  Company Number: LV-ROCHE-2041173

PATIENT
  Age: 73 Year
  Sex: Male
  Weight: 72 kg

DRUGS (27)
  1. ATEZOLIZUMAB. [Suspect]
     Active Substance: ATEZOLIZUMAB
     Indication: SMALL CELL LUNG CANCER
     Dosage: ON DAY 1 OF EACH 21-DAY CYCLE.?SUBSEQUENT DOSES ON 27/DEC/2017, 23/JAN/2018 AND 28/FEB/2018.
     Route: 042
     Dates: start: 20171122
  2. BISOPROLOL [Concomitant]
     Active Substance: BISOPROLOL
     Indication: ATRIAL FIBRILLATION
     Route: 048
     Dates: start: 20171130
  3. AUGMENTIN [Concomitant]
     Active Substance: AMOXICILLIN\CLAVULANATE POTASSIUM
     Indication: FEBRILE NEUTROPENIA
     Dosage: 875/125 MG
     Route: 048
     Dates: start: 20171207, end: 20171210
  4. METFORMIN [Concomitant]
     Active Substance: METFORMIN HYDROCHLORIDE
     Indication: PRODUCT USED FOR UNKNOWN INDICATION
     Route: 048
     Dates: start: 201709
  5. ULTRACOD [Concomitant]
     Indication: PRODUCT USED FOR UNKNOWN INDICATION
     Dosage: 500MG/30MG
     Route: 048
     Dates: start: 20171101
  6. BLINDED TRILACICLIB [Suspect]
     Active Substance: TRILACICLIB
     Route: 042
     Dates: start: 20180125, end: 20180125
  7. ETOPOSIDE PHOSPHATE [Suspect]
     Active Substance: ETOPOSIDE PHOSPHATE
     Indication: SMALL CELL LUNG CANCER
     Dosage: 100 MG/M2 WILL BE ADMINISTERED IV DAILY ON DAYS 1, 2, AND 3 OF EACH 21-DAY CYCLE.?SUBSEQUENT DOSES O
     Route: 042
     Dates: start: 20171122
  8. CARBOPLATIN. [Suspect]
     Active Substance: CARBOPLATIN
     Route: 042
     Dates: start: 20171227, end: 20171227
  9. FUROSEMIDE. [Concomitant]
     Active Substance: FUROSEMIDE
     Indication: ATRIAL FIBRILLATION
     Route: 048
     Dates: start: 20171208, end: 20180306
  10. SPIRIX [Concomitant]
     Active Substance: SPIRONOLACTONE
     Indication: ATRIAL FIBRILLATION
     Route: 048
     Dates: start: 20171207, end: 20180306
  11. CARBOPLATIN. [Suspect]
     Active Substance: CARBOPLATIN
     Indication: SMALL CELL LUNG CANCER
     Dosage: WOULD BE ADMINISTERED ON DAY 1 OF EACH 21-DAY CYCLE CALVERT FORMULA WITH A TARGET AUC = 5 MILLIGRAMS
     Route: 042
     Dates: start: 20171122, end: 20171122
  12. NEBILET [Concomitant]
     Active Substance: NEBIVOLOL
     Indication: MYOCARDIAL INFARCTION
     Route: 048
     Dates: start: 2013, end: 20171129
  13. AUGMENTIN [Concomitant]
     Active Substance: AMOXICILLIN\CLAVULANATE POTASSIUM
     Dosage: 875/125 MG
     Route: 048
     Dates: start: 20180206, end: 20180207
  14. DEXAMETHASONE. [Concomitant]
     Active Substance: DEXAMETHASONE
     Dosage: BEFORE EVERY ETOPOSIDE INFUSION
     Route: 042
     Dates: start: 20171122, end: 20180125
  15. LEXOTANIL [Concomitant]
     Active Substance: BROMAZEPAM
     Route: 048
     Dates: start: 20171122, end: 20180125
  16. HJERTEMAGNYL [Concomitant]
     Active Substance: ASPIRIN\MAGNESIUM OXIDE
     Indication: MYOCARDIAL INFARCTION
     Route: 048
     Dates: start: 2013
  17. NOLIPREL FORTE [Concomitant]
     Indication: ESSENTIAL HYPERTENSION
     Dosage: 5MG/1.25MG
     Route: 048
     Dates: start: 2013
  18. ETOPOSIDE PHOSPHATE [Suspect]
     Active Substance: ETOPOSIDE PHOSPHATE
     Route: 042
     Dates: start: 20180125, end: 20180125
  19. ATORVASTATIN [Concomitant]
     Active Substance: ATORVASTATIN
     Indication: DYSLIPIDAEMIA
     Route: 048
     Dates: start: 2013
  20. TAZOCIN [Concomitant]
     Active Substance: PIPERACILLIN SODIUM\TAZOBACTAM SODIUM
     Indication: INFECTIOUS PLEURAL EFFUSION
     Route: 042
     Dates: start: 20180302, end: 20180306
  21. DIGOXINUM [Concomitant]
     Indication: ATRIAL FIBRILLATION
     Route: 048
     Dates: start: 20171207
  22. ONDANSETRON [Concomitant]
     Active Substance: ONDANSETRON
     Route: 042
     Dates: start: 20171122, end: 20180125
  23. ATEZOLIZUMAB. [Suspect]
     Active Substance: ATEZOLIZUMAB
     Dosage: ON DAY 1 OF EACH 21-DAY CYCLE.
     Route: 042
     Dates: start: 20171227
  24. ATEZOLIZUMAB. [Suspect]
     Active Substance: ATEZOLIZUMAB
     Dosage: ON DAY 1 OF EACH 21-DAY CYCLE.
     Route: 042
     Dates: start: 20180123
  25. ATEZOLIZUMAB. [Suspect]
     Active Substance: ATEZOLIZUMAB
     Dosage: ON DAY 1 OF EACH 21-DAY CYCLE.
     Route: 042
     Dates: start: 20180228, end: 20180228
  26. BLINDED TRILACICLIB [Suspect]
     Active Substance: TRILACICLIB
     Indication: SMALL CELL LUNG CANCER
     Dosage: ONCE DAILY ON DAYS 1, 2 AND 3 OF EACH 21-DAY?SUBSEQUENT DOSES ON 23/NOV/2017, 24/NOV/2017, 27/DEC/20
     Route: 042
     Dates: start: 20171122
  27. CARBOPLATIN. [Suspect]
     Active Substance: CARBOPLATIN
     Dosage: CALVERT FORMULA WITH A TARGET AUC = 4 MILLIGRAMS PER MILLILITER PER MINUTE (MG/ML/MIN) TO CALCULATE
     Route: 042
     Dates: start: 20180123, end: 20180123

REACTIONS (5)
  - Febrile neutropenia [Recovered/Resolved]
  - Thrombocytopenia [Recovered/Resolved]
  - Infectious pleural effusion [Fatal]
  - Neutropenia [Recovered/Resolved]
  - Anaemia [Not Recovered/Not Resolved]

NARRATIVE: CASE EVENT DATE: 20171203
